FAERS Safety Report 9258822 (Version 1)
Quarter: 2013Q2

REPORT INFORMATION
  Report Type: Spontaneous
  Country: BR (occurrence: BR)
  Receive Date: 20130426
  Receipt Date: 20130430
  Transmission Date: 20140414
  Serious: Yes (Death, Hospitalization, Other)
  Sender: FDA-Public Use
  Company Number: BR-JNJFOC-20130411158

PATIENT
  Age: 70 Year
  Sex: Male

DRUGS (3)
  1. XARELTO [Suspect]
     Indication: EMBOLISM VENOUS
     Route: 048
     Dates: start: 201303
  2. XARELTO [Suspect]
     Indication: DEEP VEIN THROMBOSIS
     Route: 048
     Dates: start: 201303
  3. VENALOT [COUMARIN,TROXERUTIN] [Interacting]
     Indication: PRODUCT USED FOR UNKNOWN INDICATION
     Route: 065

REACTIONS (10)
  - Death [Fatal]
  - Hepatic failure [Not Recovered/Not Resolved]
  - Renal impairment [Not Recovered/Not Resolved]
  - Respiratory distress [Not Recovered/Not Resolved]
  - Lung consolidation [Not Recovered/Not Resolved]
  - Coagulation test abnormal [Unknown]
  - Haemodynamic instability [Not Recovered/Not Resolved]
  - Haemolysis [Not Recovered/Not Resolved]
  - Platelet disorder [Not Recovered/Not Resolved]
  - Drug interaction [Unknown]
